FAERS Safety Report 19481174 (Version 3)
Quarter: 2021Q3

REPORT INFORMATION
  Report Type: Spontaneous
  Country: US (occurrence: US)
  Receive Date: 20210701
  Receipt Date: 20210821
  Transmission Date: 20211014
  Serious: Yes (Other)
  Sender: FDA-Public Use
  Company Number: US-HETERO-HET2021US01308

PATIENT

DRUGS (1)
  1. MESALAMINE. [Suspect]
     Active Substance: MESALAMINE
     Indication: HAEMORRHAGE
     Dosage: 1000 MG, UNK
     Route: 054

REACTIONS (2)
  - Product colour issue [Unknown]
  - Haemorrhage [Not Recovered/Not Resolved]
